FAERS Safety Report 5273865-1 (Version None)
Quarter: 2007Q1

REPORT INFORMATION
  Report Type: 
  Country: None (occurrence: None)
  Receive Date: 20070323
  Receipt Date: 20070313
  Transmission Date: 20070707
  Serious: Yes (Hospitalization)
  Sender: FDA-Public Use
  Company Number: DE-ROCHE-487391

PATIENT
  Age: 34 Year
  Sex: Female

DRUGS (3)
  1. MYCOPHENOLATE MOFETIL [Suspect]
     Route: 065
  2. CHLOROQUINE [Concomitant]
  3. CORTICOSTEROIDS [Concomitant]
     Dosage: LOW DOSE

REACTIONS (1)
  - LUPUS NEPHRITIS [None]
